FAERS Safety Report 5086499-9 (Version None)
Quarter: 2006Q3

REPORT INFORMATION
  Report Type: 
  Country: None (occurrence: None)
  Receive Date: 20060823
  Receipt Date: 20060815
  Transmission Date: 20061208
  Serious: Yes (Other)
  Sender: FDA-Public Use
  Company Number: PHEH2006US10416

PATIENT
  Age: 33 Year
  Sex: Male

DRUGS (2)
  1. ZELNORM [Suspect]
     Indication: CONSTIPATION
     Dosage: 6 MG, PRN
     Route: 048
     Dates: start: 20060701
  2. LACTULOSE [Concomitant]

REACTIONS (1)
  - RECTAL HAEMORRHAGE [None]
